FAERS Safety Report 11482777 (Version 1)
Quarter: 2015Q3

REPORT INFORMATION
  Report Type: Spontaneous
  Country: US (occurrence: None)
  Receive Date: 20150908
  Receipt Date: 20150908
  Transmission Date: 20151125
  Serious: Yes (Life-Threatening, Hospitalization)
  Sender: FDA-Public Use
  Company Number: None

PATIENT
  Age: 55 Year
  Sex: Male
  Weight: 55.79 kg

DRUGS (6)
  1. OMEPRAZOLE [PRILOSEC] [Concomitant]
  2. LEVOTHYROXINE SODIUM [SYNTHROID] [Concomitant]
  3. CELEBREX [Concomitant]
     Active Substance: CELECOXIB
  4. LIALDA [Suspect]
     Active Substance: MESALAMINE
     Indication: COLITIS ULCERATIVE
     Dosage: 4 TABLETS ONCE DAILY TAKEN BY MOUTH
     Route: 048
     Dates: start: 20130806, end: 20130831
  5. ZOLPIDEM TARTRATE [AMBIEN CR] [Concomitant]
  6. COLCHICINE [COLCHICINE] [Concomitant]

REACTIONS (1)
  - Pericarditis [None]

NARRATIVE: CASE EVENT DATE: 20130902
